FAERS Safety Report 17398519 (Version 1)
Quarter: 2020Q1

REPORT INFORMATION
  Report Type: Spontaneous
  Country: US (occurrence: US)
  Receive Date: 20200210
  Receipt Date: 20200210
  Transmission Date: 20200409
  Serious: Yes (Death)
  Sender: FDA-Public Use
  Company Number: NVSC2020US033659

PATIENT
  Age: 65 Year
  Sex: Female

DRUGS (3)
  1. CLINDAMYCIN. [Suspect]
     Active Substance: CLINDAMYCIN
     Indication: STREPTOCOCCAL INFECTION
     Dosage: UNK
     Route: 065
  2. VANCOMYCIN [Suspect]
     Active Substance: VANCOMYCIN
     Indication: STREPTOCOCCAL INFECTION
     Dosage: UNK
     Route: 065
  3. MEROPENEM. [Suspect]
     Active Substance: MEROPENEM
     Indication: STREPTOCOCCAL INFECTION
     Dosage: UNK
     Route: 065

REACTIONS (2)
  - Providencia infection [Fatal]
  - Drug ineffective [Unknown]
